FAERS Safety Report 6875920-9 (Version None)
Quarter: 2010Q3

REPORT INFORMATION
  Report Type: 
  Country: None (occurrence: None)
  Receive Date: 20100727
  Receipt Date: 20070702
  Transmission Date: 20110219
  Serious: Yes (Hospitalization, Other)
  Sender: FDA-Public Use
  Company Number: US-PFIZER INC-2006150325

PATIENT
  Sex: Male
  Weight: 104.3 kg

DRUGS (14)
  1. CELEBREX [Suspect]
     Indication: OSTEOARTHRITIS
     Route: 048
     Dates: start: 19990215
  2. VIOXX [Suspect]
     Indication: OSTEOARTHRITIS
     Route: 048
     Dates: start: 20010119
  3. ACETAMINOPHEN W/ CODEINE [Concomitant]
     Indication: PAIN
     Dates: start: 20011109
  4. CARISOPRODOL [Concomitant]
     Indication: PAIN
     Dates: start: 19991129
  5. CELEXA [Concomitant]
     Indication: DEPRESSION
  6. CYCLOBENZAPRINE [Concomitant]
     Indication: PAIN
     Dates: start: 19990313
  7. ACETAMINOPHEN AND HYDROCODONE BITARTRATE [Concomitant]
     Indication: PAIN
     Dates: start: 19981204
  8. IBUPROFEN TABLETS [Concomitant]
     Indication: INFLAMMATION
     Dates: start: 19991129
  9. LEVAQUIN [Concomitant]
     Indication: BACTERIAL INFECTION
  10. PAXIL [Concomitant]
     Indication: ANXIETY
     Dates: start: 19990601
  11. PAXIL [Concomitant]
     Indication: NEURALGIA
  12. PULMICORT [Concomitant]
     Indication: ASTHMA
  13. SKELAXIN [Concomitant]
     Indication: PAIN
     Dates: start: 20010119
  14. TIZANIDINE HCL [Concomitant]
     Indication: PAIN
     Dates: start: 20020821

REACTIONS (1)
  - PULMONARY EMBOLISM [None]
